FAERS Safety Report 21445625 (Version 1)
Quarter: 2022Q4

REPORT INFORMATION
  Report Type: Spontaneous
  Country: CN (occurrence: CN)
  Receive Date: 20221012
  Receipt Date: 20221012
  Transmission Date: 20230113
  Serious: Yes (Hospitalization, Other)
  Sender: FDA-Public Use
  Company Number: CN-009507513-2210CHN001406

PATIENT
  Age: 80 Year
  Sex: Female

DRUGS (2)
  1. PEMBROLIZUMAB [Suspect]
     Active Substance: PEMBROLIZUMAB
     Indication: Squamous cell carcinoma of head and neck
     Dosage: 200 MILLIGRAM, Q3W
     Route: 042
  2. NIMOTUZUMAB [Concomitant]
     Active Substance: NIMOTUZUMAB
     Indication: Squamous cell carcinoma of head and neck
     Dosage: 200 MILLIGRAM, Q3W
     Route: 042

REACTIONS (2)
  - Immune-mediated myocarditis [Recovered/Resolved]
  - Atrioventricular block complete [Recovered/Resolved]
